FAERS Safety Report 7657492-4 (Version None)
Quarter: 2011Q3

REPORT INFORMATION
  Report Type: 
  Country: None (occurrence: None)
  Receive Date: 20110804
  Receipt Date: 20100723
  Transmission Date: 20111222
  Serious: Yes (Death)
  Sender: FDA-Public Use
  Company Number: PE-ASTRAZENECA-2011SE45095

PATIENT
  Age: 91 Year
  Sex: Female

DRUGS (3)
  1. NEXIUM [Suspect]
     Indication: GASTRIC ULCER
     Route: 048
     Dates: start: 20080505
  2. CLARITHROMYCIN [Suspect]
     Indication: GASTRIC ULCER
     Route: 065
     Dates: start: 20080505
  3. AMOXICILLIN [Suspect]
     Indication: GASTRIC ULCER
     Route: 065
     Dates: start: 20080505

REACTIONS (1)
  - DEATH [None]
